FAERS Safety Report 4395209-X (Version None)
Quarter: 2004Q3

REPORT INFORMATION
  Report Type: 
  Country: None (occurrence: None)
  Receive Date: 20040712
  Receipt Date: 20040702
  Transmission Date: 20050211
  Serious: Yes (Hospitalization)
  Sender: FDA-Public Use
  Company Number: JP-MERCK-0407USA00443

PATIENT
  Age: 75 Year
  Sex: Female

DRUGS (2)
  1. PEPCID [Suspect]
     Route: 048
  2. TEPRENONE [Suspect]
     Route: 048

REACTIONS (3)
  - BRONCHOALVEOLAR LAVAGE ABNORMAL [None]
  - EOSINOPHILIA [None]
  - LYMPHOCYTE STIMULATION TEST POSITIVE [None]
